FAERS Safety Report 5299031-1 (Version None)
Quarter: 2007Q2

REPORT INFORMATION
  Report Type: 
  Country: None (occurrence: None)
  Receive Date: 20070412
  Receipt Date: 20070412
  Transmission Date: 20071010
  Serious: Yes (Life-Threatening, Hospitalization, Other)
  Sender: FDA-Public Use
  Company Number: None

PATIENT
  Sex: Male
  Weight: 99.7913 kg

DRUGS (1)
  1. GADOLINIUM [Suspect]

REACTIONS (3)
  - NEPHROGENIC FIBROSING DERMOPATHY [None]
  - OESOPHAGEAL DISORDER [None]
  - PAIN [None]
